FAERS Safety Report 5471325-6 (Version None)
Quarter: 2007Q3

REPORT INFORMATION
  Report Type: 
  Country: None (occurrence: None)
  Receive Date: 20070928
  Receipt Date: 20060808
  Transmission Date: 20080115
  Serious: No
  Sender: FDA-Public Use
  Company Number: US-BRISTOL-MYERS SQUIBB COMPANY-13468657

PATIENT
  Age: 50 Year
  Sex: Female
  Weight: 144 kg

DRUGS (14)
  1. DEFINITY [Suspect]
     Indication: ECHOCARDIOGRAM
     Dates: start: 20060804
  2. SODIUM POLYSTYRENE SULFONATE [Concomitant]
  3. CIPROFLOXACIN [Concomitant]
  4. SODIUM BICARBONATE [Concomitant]
  5. OXYCODONE HCL [Concomitant]
  6. LORAZEPAM [Concomitant]
  7. PAPAIN [Concomitant]
  8. DOCUSATE [Concomitant]
  9. LEVOTHYROXINE SODIUM [Concomitant]
  10. CLOPIDOGREL BISULFATE [Concomitant]
  11. CALCIUM ACETATE [Concomitant]
  12. CLINDAMYCIN HCL [Concomitant]
  13. ASPIRIN [Concomitant]
  14. VENLAFAXINE HCL [Concomitant]

REACTIONS (5)
  - ARTHRALGIA [None]
  - CHEST PAIN [None]
  - FACIAL PAIN [None]
  - PAIN IN JAW [None]
  - TOOTHACHE [None]
